FAERS Safety Report 8518629-8 (Version None)
Quarter: 2012Q3

REPORT INFORMATION
  Report Type: 
  Country: None (occurrence: None)
  Receive Date: 20120718
  Receipt Date: 20110601
  Transmission Date: 20120928
  Serious: No
  Sender: FDA-Public Use
  Company Number: US-BRISTOL-MYERS SQUIBB COMPANY-15797343

PATIENT
  Age: 60 Year
  Sex: Male

DRUGS (1)
  1. COUMADIN [Suspect]
     Dosage: 5MG EVERY DAY OF THE WEEK EXCEPT TUESDAY THE DOSE ON TUESDAY IS 7.5MG.

REACTIONS (1)
  - THERAPEUTIC RESPONSE UNEXPECTED [None]
